FAERS Safety Report 4954006-4 (Version None)
Quarter: 2006Q1

REPORT INFORMATION
  Report Type: 
  Country: None (occurrence: None)
  Receive Date: 20060321
  Receipt Date: 20060224
  Transmission Date: 20060701
  Serious: No
  Sender: FDA-Public Use
  Company Number: 2006-PI089

PATIENT
  Age: 13 Month
  Sex: Male

DRUGS (1)
  1. CHLORAPREP ONE-STEP SEPP [Suspect]
     Indication: PREOPERATIVE CARE
     Dosage: ONCE, TOPICAL
     Route: 061

REACTIONS (2)
  - DEVICE FAILURE [None]
  - HAEMORRHAGE [None]
